FAERS Safety Report 15359544 (Version 1)
Quarter: 2018Q3

REPORT INFORMATION
  Report Type: Spontaneous
  Country: FR (occurrence: FR)
  Receive Date: 20180907
  Receipt Date: 20180907
  Transmission Date: 20181010
  Serious: Yes (Hospitalization)
  Sender: FDA-Public Use
  Company Number: FR-ROCHE-2181312

PATIENT
  Age: 58 Year
  Sex: Male
  Weight: 89 kg

DRUGS (3)
  1. QIZENDAY [Concomitant]
     Active Substance: BIOTIN
     Indication: MULTIPLE SCLEROSIS
     Route: 048
     Dates: start: 20160622
  2. RITUXIMAB. [Suspect]
     Active Substance: RITUXIMAB
     Indication: MULTIPLE SCLEROSIS
     Route: 042
     Dates: start: 20151227
  3. BACLOFENE [Concomitant]
     Active Substance: BACLOFEN
     Indication: MUSCLE SPASTICITY
     Route: 048
     Dates: start: 2016

REACTIONS (2)
  - Pneumonia [Recovering/Resolving]
  - Organising pneumonia [Recovering/Resolving]

NARRATIVE: CASE EVENT DATE: 20180430
